FAERS Safety Report 8917159 (Version 1)
Quarter: 2012Q4

REPORT INFORMATION
  Report Type: 
  Country: US (occurrence: US)
  Receive Date: 20121120
  Receipt Date: 20121120
  Transmission Date: 20130627
  Serious: Yes (Other)
  Sender: FDA-Public Use
  Company Number: PHEH2012US022707

PATIENT
  Sex: Female

DRUGS (3)
  1. RECLAST [Suspect]
  2. FOSAMAX [Suspect]
  3. BONIVA [Suspect]

REACTIONS (5)
  - Femur fracture [Unknown]
  - Injury [Unknown]
  - Bone disorder [Unknown]
  - Emotional distress [Unknown]
  - Pain [Unknown]
